FAERS Safety Report 25051528 (Version 3)
Quarter: 2025Q2

REPORT INFORMATION
  Report Type: Spontaneous
  Country: CO (occurrence: CO)
  Receive Date: 20250307
  Receipt Date: 20250505
  Transmission Date: 20250716
  Serious: No
  Sender: PFIZER
  Company Number: CO-PFIZER INC-PV202500026336

PATIENT
  Sex: Female

DRUGS (1)
  1. GENOTROPIN [Suspect]
     Active Substance: SOMATROPIN
     Dosage: 1.4MG / 1.6MG ALTERNATED, DAILY, DAILY

REACTIONS (6)
  - Device mechanical issue [Unknown]
  - Device use issue [Unknown]
  - Device information output issue [Unknown]
  - Device use issue [Unknown]
  - Device physical property issue [Unknown]
  - Device power source issue [Unknown]
